FAERS Safety Report 13498838 (Version 4)
Quarter: 2018Q3

REPORT INFORMATION
  Report Type: Spontaneous
  Country: US (occurrence: US)
  Receive Date: 20170501
  Receipt Date: 20180802
  Transmission Date: 20181010
  Serious: Yes (Hospitalization, Other)
  Sender: FDA-Public Use
  Company Number: PHEH2017US011726

PATIENT
  Age: 20 Year
  Sex: Male

DRUGS (7)
  1. TEGRETOL [Suspect]
     Active Substance: CARBAMAZEPINE
     Dosage: 1 OT, QD (ANOTHER ONE HALF TEASPOON )
     Route: 065
  2. TEGRETOL [Suspect]
     Active Substance: CARBAMAZEPINE
     Dosage: 200 MG, UNK
     Route: 048
     Dates: end: 20170416
  3. TEGRETOL [Suspect]
     Active Substance: CARBAMAZEPINE
     Dosage: 2 DF, BID (100 MG, 2 TSP, EVERY 12 HRS)
     Route: 048
  4. TEGRETOL [Suspect]
     Active Substance: CARBAMAZEPINE
     Indication: PRODUCT USED FOR UNKNOWN INDICATION
     Dosage: 2 OT, BID (100 MG, 2 TABLE SPOON)
     Route: 065
     Dates: start: 201602
  5. TEGRETOL [Suspect]
     Active Substance: CARBAMAZEPINE
     Dosage: 2 OT, QD (ONE HALF TEASPOON A DAY FOR TWO WEEKS)
     Route: 065
  6. TEGRETOL [Suspect]
     Active Substance: CARBAMAZEPINE
     Dosage: 100 MG, BID (1/4 OF A TEASPOON ONLY)
     Route: 065
  7. CARBAMAZEPINE. [Suspect]
     Active Substance: CARBAMAZEPINE
     Indication: PRODUCT USED FOR UNKNOWN INDICATION
     Route: 042

REACTIONS (19)
  - Learning disability [Unknown]
  - Generalised tonic-clonic seizure [Unknown]
  - Malaise [Unknown]
  - Lethargy [Unknown]
  - Postictal state [Unknown]
  - Irritability [Unknown]
  - Sleep disorder [Unknown]
  - Cognitive disorder [Unknown]
  - Hiccups [Not Recovered/Not Resolved]
  - Seizure [Unknown]
  - Eating disorder [Unknown]
  - Somnolence [Unknown]
  - Vomiting [Unknown]
  - Fatigue [Unknown]
  - Autism spectrum disorder [Unknown]
  - Daydreaming [Not Recovered/Not Resolved]
  - Feeling abnormal [Unknown]
  - Memory impairment [Unknown]
  - Headache [Unknown]

NARRATIVE: CASE EVENT DATE: 20180725
